FAERS Safety Report 9433795 (Version 1)
Quarter: 2013Q3

REPORT INFORMATION
  Report Type: Spontaneous
  Country: GB (occurrence: GB)
  Receive Date: 20130731
  Receipt Date: 20130731
  Transmission Date: 20140515
  Serious: Yes (Other)
  Sender: FDA-Public Use
  Company Number: PHFR2013GB004290

PATIENT
  Age: 51 Year
  Sex: Male

DRUGS (2)
  1. CLOZAPINE [Suspect]
     Dosage: UNK
     Dates: start: 2008
  2. SODIUM VALPROATE [Concomitant]
     Dosage: UNK

REACTIONS (4)
  - Hypersomnia [Not Recovered/Not Resolved]
  - Anal fissure [Recovered/Resolved]
  - Proctalgia [Recovered/Resolved]
  - Insomnia [Not Recovered/Not Resolved]
